FAERS Safety Report 19142018 (Version 1)
Quarter: 2021Q2

REPORT INFORMATION
  Report Type: Report from Study
  Country: US (occurrence: US)
  Receive Date: 20210415
  Receipt Date: 20210415
  Transmission Date: 20210717
  Serious: Yes (Other)
  Sender: FDA-Public Use
  Company Number: US-INCYTE CORPORATION-2021IN002093

PATIENT

DRUGS (2)
  1. JAKAFI [Suspect]
     Active Substance: RUXOLITINIB
     Indication: MYELOFIBROSIS
     Dosage: 5 MILLIGRAM, BID
     Route: 065
  2. JAKAFI [Suspect]
     Active Substance: RUXOLITINIB
     Dosage: 10 MILLIGRAM, BID FOR 3 MONTHS
     Route: 065

REACTIONS (7)
  - Thrombocytopenia [Unknown]
  - Myelofibrosis [Unknown]
  - Anaemia [Unknown]
  - Fatigue [Unknown]
  - Early satiety [Unknown]
  - Disease progression [Unknown]
  - Night sweats [Unknown]
